FAERS Safety Report 9970487 (Version 1)
Quarter: 2014Q1

REPORT INFORMATION
  Report Type: Report from Study
  Country: US (occurrence: US)
  Receive Date: 20140306
  Receipt Date: 20140306
  Transmission Date: 20141002
  Serious: No
  Sender: FDA-Public Use
  Company Number: US-ABBVIE-13P-163-1151629-00

PATIENT
  Age: 46 Year
  Sex: Female

DRUGS (6)
  1. HUMIRA [Suspect]
     Indication: CROHN^S DISEASE
     Dates: start: 20130828, end: 20130828
  2. HUMIRA [Suspect]
     Dates: start: 20130911, end: 20130911
  3. HUMIRA [Suspect]
  4. IMURAN [Concomitant]
     Indication: CROHN^S DISEASE
  5. NEXIUM [Concomitant]
     Indication: GASTROOESOPHAGEAL REFLUX DISEASE
  6. MULTIVITAMIN [Concomitant]
     Indication: PRODUCT USED FOR UNKNOWN INDICATION

REACTIONS (5)
  - Dizziness [Not Recovered/Not Resolved]
  - Injection site pain [Not Recovered/Not Resolved]
  - Urticaria [Not Recovered/Not Resolved]
  - Nasopharyngitis [Not Recovered/Not Resolved]
  - Oropharyngeal pain [Not Recovered/Not Resolved]
